FAERS Safety Report 6702244-2 (Version None)
Quarter: 2010Q2

REPORT INFORMATION
  Report Type: 
  Country: None (occurrence: None)
  Receive Date: 20100429
  Receipt Date: 20100423
  Transmission Date: 20101027
  Serious: Yes (Hospitalization, Other)
  Sender: FDA-Public Use
  Company Number: US-MERCK-0908USA01683

PATIENT
  Age: 53 Year
  Sex: Female

DRUGS (3)
  1. FOSAMAX [Suspect]
     Indication: OSTEOPENIA
     Route: 048
     Dates: start: 20000101, end: 20051201
  2. FOSAMAX [Suspect]
     Indication: OSTEOPOROSIS
     Route: 048
     Dates: start: 20000101, end: 20051201
  3. BONIVA [Suspect]
     Indication: OSTEOPENIA
     Route: 065
     Dates: start: 20051201, end: 20090101

REACTIONS (20)
  - AUTOIMMUNE THYROIDITIS [None]
  - BLOOD CHOLESTEROL ABNORMAL [None]
  - BONE DENSITY DECREASED [None]
  - DENTAL CARIES [None]
  - DYSTONIA [None]
  - GINGIVAL BLEEDING [None]
  - GOUT [None]
  - HERNIA [None]
  - HYPERLIPIDAEMIA [None]
  - HYPOTHYROIDISM [None]
  - IMPAIRED HEALING [None]
  - ORAL DISORDER [None]
  - ORAL INFECTION [None]
  - OSTEOMYELITIS [None]
  - OSTEONECROSIS [None]
  - PERIODONTAL DISEASE [None]
  - PSEUDOCYST [None]
  - TOOTH ABSCESS [None]
  - TOOTH DISORDER [None]
  - TOOTH FRACTURE [None]
